FAERS Safety Report 4444491-9 (Version None)
Quarter: 2004Q3

REPORT INFORMATION
  Report Type: 
  Country: None (occurrence: None)
  Receive Date: 20040909
  Receipt Date: 20040901
  Transmission Date: 20050211
  Serious: Yes (Hospitalization)
  Sender: FDA-Public Use
  Company Number: FR-JNJFOC-20040602028

PATIENT
  Age: 59 Year
  Sex: Male
  Weight: 64 kg

DRUGS (9)
  1. REMICADE [Suspect]
     Route: 042
  2. REMICADE [Suspect]
     Indication: ANKYLOSING SPONDYLITIS
     Route: 042
  3. JOSIR [Concomitant]
     Route: 049
  4. FELODIPINE [Concomitant]
     Route: 049
  5. ATENOLOL [Concomitant]
     Route: 049
  6. COZAAR [Concomitant]
     Route: 049
  7. ASPIRIN [Concomitant]
     Route: 049
  8. NEXIUM [Concomitant]
     Route: 049
  9. DEROXAT [Concomitant]
     Indication: DEPRESSION
     Route: 049

REACTIONS (2)
  - SERUM FERRITIN DECREASED [None]
  - SLEEP APNOEA SYNDROME [None]
